FAERS Safety Report 25594733 (Version 1)
Quarter: 2025Q3

REPORT INFORMATION
  Report Type: Spontaneous
  Country: US (occurrence: None)
  Receive Date: 20250723
  Receipt Date: 20250723
  Transmission Date: 20251021
  Serious: Yes (Hospitalization)
  Sender: EMMAUS LIFE SCIENCES
  Company Number: US-Emmaus Medical, Inc.-EMM202507-000108

PATIENT
  Age: 12 Year
  Sex: Male

DRUGS (1)
  1. ENDARI [Suspect]
     Active Substance: GLUTAMINE
     Indication: Sickle cell disease
     Dates: start: 202406

REACTIONS (2)
  - Hospitalisation [Unknown]
  - Emergency care [Unknown]

NARRATIVE: CASE EVENT DATE: 20250101
